FAERS Safety Report 4831151-5 (Version None)
Quarter: 2005Q4

REPORT INFORMATION
  Report Type: 
  Country: None (occurrence: None)
  Receive Date: 20051114
  Receipt Date: 20051028
  Transmission Date: 20060501
  Serious: Yes (Life-Threatening)
  Sender: FDA-Public Use
  Company Number: DSA_27299_2005

PATIENT
  Age: 5 Month
  Sex: Female
  Weight: 4 kg

DRUGS (8)
  1. LORAZEPAM [Suspect]
     Indication: CONVULSION
     Dosage: 10 MG Q DAY PO
     Route: 048
     Dates: start: 20050616
  2. CLOBAZAM [Suspect]
     Indication: CONVULSION
     Dosage: 1 MG Q DAY PO
     Route: 048
     Dates: start: 20050127, end: 20050620
  3. GASTER [Concomitant]
  4. UNASYN [Concomitant]
  5. THYRADIN S [Concomitant]
  6. MIDAZOLAM HCL [Suspect]
     Indication: CONVULSION
     Dosage: DF IV
     Route: 042
     Dates: start: 20050603
  7. PHENOBAL [Suspect]
     Indication: CONVULSION
     Dosage: 48 MG Q DAY PO
     Route: 048
     Dates: start: 20050101
  8. THIOPENTAL SODIUM [Suspect]
     Indication: CONVULSION
     Dosage: 1.3 MG/KG Q1HR IV
     Route: 042
     Dates: start: 20050609, end: 20050616

REACTIONS (1)
  - CARDIAC ARREST [None]
